FAERS Safety Report 23345980 (Version 1)
Quarter: 2023Q4

REPORT INFORMATION
  Report Type: Spontaneous
  Country: US (occurrence: US)
  Receive Date: 20231228
  Receipt Date: 20231228
  Transmission Date: 20240110
  Serious: No
  Sender: FDA-Public Use
  Company Number: US-LEO Pharma-366317

PATIENT
  Age: 49 Year
  Sex: Female

DRUGS (1)
  1. ADBRY [Suspect]
     Active Substance: TRALOKINUMAB-LDRM
     Indication: Dermatitis atopic
     Dosage: 3 MG , TREATMENT IS ONGOING
     Route: 058
     Dates: start: 202310

REACTIONS (3)
  - Eye irritation [Recovered/Resolved]
  - Dry eye [Not Recovered/Not Resolved]
  - Eyelid irritation [Not Recovered/Not Resolved]
